FAERS Safety Report 5467052-1 (Version None)
Quarter: 2007Q3

REPORT INFORMATION
  Report Type: 
  Country: None (occurrence: None)
  Receive Date: 20070925
  Receipt Date: 20070921
  Transmission Date: 20080115
  Serious: Yes (Other)
  Sender: FDA-Public Use
  Company Number: B0488316A

PATIENT
  Age: 61 Year
  Sex: Female

DRUGS (3)
  1. CLAVULIN [Suspect]
     Indication: DRUG USE FOR UNKNOWN INDICATION
     Dosage: 1000MG PER DAY
     Route: 048
     Dates: start: 20070906, end: 20070906
  2. RAMIPRIL [Concomitant]
     Indication: DRUG USE FOR UNKNOWN INDICATION
     Route: 065
  3. THEOPHYLLINE [Concomitant]
     Indication: DRUG USE FOR UNKNOWN INDICATION
     Route: 065

REACTIONS (6)
  - BRONCHOSPASM [None]
  - DYSPNOEA [None]
  - HYPERCAPNIA [None]
  - HYPOXIA [None]
  - PRURITUS [None]
  - RESPIRATORY FAILURE [None]
